FAERS Safety Report 23224383 (Version 3)
Quarter: 2024Q1

REPORT INFORMATION
  Report Type: Spontaneous
  Country: US (occurrence: US)
  Receive Date: 20231124
  Receipt Date: 20240119
  Transmission Date: 20240410
  Serious: Yes (Other)
  Sender: FDA-Public Use
  Company Number: US-LEO Pharma-365266

PATIENT
  Age: 46 Year
  Sex: Female

DRUGS (5)
  1. ADBRY [Suspect]
     Active Substance: TRALOKINUMAB-LDRM
     Indication: Dermatitis atopic
     Route: 058
     Dates: start: 20231006
  2. ADVAIR 100-50 DISKUS, [Concomitant]
     Indication: Product used for unknown indication
  3. NASONEX 50 MCG NASAL SPRAY [Concomitant]
     Indication: Product used for unknown indication
  4. ALBUTEROL 90 MCG INHALER [Concomitant]
     Indication: Product used for unknown indication
     Dosage: 90 MCG, INHALER
  5. CELLCEPT 250 MG CAPSULE [Concomitant]
     Indication: Product used for unknown indication

REACTIONS (1)
  - Anaphylactic reaction [Recovered/Resolved]
